FAERS Safety Report 10300108 (Version 2)
Quarter: 2014Q3

REPORT INFORMATION
  Report Type: Report from Study
  Country: KR (occurrence: KR)
  Receive Date: 20140711
  Receipt Date: 20140717
  Transmission Date: 20150326
  Serious: Yes (Death, Hospitalization)
  Sender: FDA-Public Use
  Company Number: KR-GLAXOSMITHKLINE-B1013050A

PATIENT
  Age: 30 Year
  Sex: Male
  Weight: 64.2 kg

DRUGS (1)
  1. NELARABINE [Suspect]
     Active Substance: NELARABINE
     Indication: NON-HODGKIN^S LYMPHOMA
     Dosage: 1500MGM2 CYCLIC
     Dates: start: 20140619

REACTIONS (3)
  - Febrile neutropenia [Fatal]
  - Large intestinal haemorrhage [Fatal]
  - Colitis [Fatal]

NARRATIVE: CASE EVENT DATE: 20140706
